FAERS Safety Report 11792933 (Version 1)
Quarter: 2015Q4

REPORT INFORMATION
  Report Type: Spontaneous
  Country: US (occurrence: None)
  Receive Date: 20151130
  Receipt Date: 20151130
  Transmission Date: 20160305
  Serious: Yes (Other)
  Sender: FDA-Public Use
  Company Number: 2015US-106500

PATIENT
  Age: 47 Year
  Sex: Female

DRUGS (3)
  1. PREDNISONE (PREDNISONE) UNKNOWN [Suspect]
     Active Substance: PREDNISONE
     Indication: BRONCHOPULMONARY ASPERGILLOSIS ALLERGIC
  2. ITRACONAZOLE. [Concomitant]
     Active Substance: ITRACONAZOLE
  3. OMALIZUMAB [Concomitant]
     Active Substance: OMALIZUMAB

REACTIONS (1)
  - Bronchopulmonary aspergillosis [None]
